FAERS Safety Report 4297555-7 (Version None)
Quarter: 2004Q1

REPORT INFORMATION
  Report Type: 
  Country: None (occurrence: None)
  Receive Date: 20040213
  Receipt Date: 20040205
  Transmission Date: 20041129
  Serious: Yes (Hospitalization)
  Sender: FDA-Public Use
  Company Number: TPA2004A00090

PATIENT
  Age: 63 Year
  Sex: Male
  Weight: 136.0791 kg

DRUGS (12)
  1. ACTOS [Suspect]
     Indication: DIABETES MELLITUS NON-INSULIN-DEPENDENT
     Dosage: 30 MG, 1 IN 1 D, PER ORAL
     Route: 048
     Dates: start: 20011101
  2. VIOXX [Suspect]
     Indication: ARTHRALGIA
     Dates: start: 20030723, end: 20040109
  3. METOPROLOL SUCCINATE [Concomitant]
  4. AMIODARONE HCL [Concomitant]
  5. ZAROXOLYN [Concomitant]
  6. GLYBURIDE [Concomitant]
  7. ISOSORBIDE DN (ISOSORBIDE DINITRATE) [Concomitant]
  8. NORVASC [Concomitant]
  9. FUROSEMIDE [Concomitant]
  10. HYDRALAZINE HCL TAB [Concomitant]
  11. CLARITIN-D [Concomitant]
  12. ASPIRIN (ACETYLSALICYCLIC AICD) [Concomitant]

REACTIONS (9)
  - ARTHRALGIA [None]
  - CARDIAC FAILURE CONGESTIVE [None]
  - CONDITION AGGRAVATED [None]
  - HAEMORRHAGE [None]
  - OEDEMA PERIPHERAL [None]
  - OPEN WOUND [None]
  - PNEUMONIA [None]
  - RENAL IMPAIRMENT [None]
  - TREATMENT NONCOMPLIANCE [None]
